FAERS Safety Report 5023782-7 (Version None)
Quarter: 2006Q2

REPORT INFORMATION
  Report Type: 
  Country: None (occurrence: None)
  Receive Date: 20060612
  Receipt Date: 20060605
  Transmission Date: 20061013
  Serious: Yes (Hospitalization)
  Sender: FDA-Public Use
  Company Number: US-BRISTOL-MYERS SQUIBB COMPANY-13400890

PATIENT
  Age: 62 Year
  Sex: Male
  Weight: 84 kg

DRUGS (18)
  1. WARFARIN SODIUM [Suspect]
     Indication: THROMBOSIS
     Dosage: CURRENT DOSE REGIMEN FOR LAST MONTH: 5 MG FOR 3 DAYS AND 2.5 MG FOR 4 DAYS
     Dates: start: 20030101
  2. LORAZEPAM [Concomitant]
  3. CLARINEX [Concomitant]
  4. ATENOLOL [Concomitant]
  5. DEPAKOTE [Concomitant]
  6. AMBIEN [Concomitant]
  7. COMBIVENT [Concomitant]
  8. TYLENOL (CAPLET) [Concomitant]
  9. MULTIVITAMIN [Concomitant]
  10. CALTRATE [Concomitant]
  11. ESTER-C [Concomitant]
  12. ESTER-C [Concomitant]
  13. SALMON OIL [Concomitant]
     Dosage: STOPPED ^1 WEEK AGO^
     Dates: end: 20060501
  14. MAGNESIUM [Concomitant]
     Dosage: STOPPED ^1 WEEK AGO^
     Dates: end: 20060501
  15. POTASSIUM [Concomitant]
     Dosage: STOPPED ^1 WEEK AGO^
  16. SELENIUM SULFIDE [Concomitant]
     Dosage: STOPPED ^1 WEEK AGO^
  17. LYCOPENE [Concomitant]
     Dosage: STOPPED ^1 WEEK AGO^
  18. Q 10 [Concomitant]
     Dosage: STOPPED ^1 WEEK AGO^

REACTIONS (6)
  - COAGULATION TEST ABNORMAL [None]
  - COUGH [None]
  - ORAL MUCOSAL BLISTERING [None]
  - ORAL SOFT TISSUE DISORDER [None]
  - RECTAL HAEMORRHAGE [None]
  - URINARY TRACT INFECTION [None]
